FAERS Safety Report 9908911 (Version 1)
Quarter: 2014Q1

REPORT INFORMATION
  Report Type: Spontaneous
  Country: US (occurrence: None)
  Receive Date: 20140211
  Receipt Date: 20140211
  Transmission Date: 20141002
  Serious: Yes (Death)
  Sender: FDA-Public Use
  Company Number: 2014020061

PATIENT
  Age: 42 Year
  Sex: Female

DRUGS (3)
  1. FENTANYL [Suspect]
  2. TRAMADOL (TRAMADOL) [Suspect]
  3. HYDROCODONE W/ACETAMINOPHEN (HYDROCODONE, ACETAMINOPHEN) [Suspect]

REACTIONS (1)
  - Exposure via ingestion [None]
